FAERS Safety Report 7504271-4 (Version None)
Quarter: 2011Q2

REPORT INFORMATION
  Report Type: 
  Country: None (occurrence: None)
  Receive Date: 20110525
  Receipt Date: 20110519
  Transmission Date: 20111010
  Serious: Yes (Hospitalization)
  Sender: FDA-Public Use
  Company Number: US-ABBOTT-11P-163-0727635-00

PATIENT
  Sex: Female
  Weight: 89.438 kg

DRUGS (8)
  1. JANUVIA [Concomitant]
     Indication: DIABETES MELLITUS
  2. METHOTREXATE [Concomitant]
     Indication: RHEUMATOID ARTHRITIS
     Dosage: ON HOLD
     Dates: end: 20101203
  3. ATENOLOL [Concomitant]
     Indication: HYPERTENSION
  4. GLIMEPIRIDE [Concomitant]
     Indication: DIABETES MELLITUS
  5. HUMIRA [Suspect]
     Indication: RHEUMATOID ARTHRITIS
     Dates: start: 20090101
  6. INDAPAMIDE [Concomitant]
     Indication: HYPERTENSION
  7. ZOCOR [Concomitant]
     Indication: BLOOD CHOLESTEROL INCREASED
  8. METFORMIN HCL [Concomitant]
     Indication: DIABETES MELLITUS

REACTIONS (10)
  - DYSPNOEA [None]
  - WEIGHT DECREASED [None]
  - FATIGUE [None]
  - MYOCARDIAL INFARCTION [None]
  - BACK PAIN [None]
  - POST PROCEDURAL COMPLICATION [None]
  - IMPAIRED HEALING [None]
  - CHEST PAIN [None]
  - HYPOPHAGIA [None]
  - CAROTID ARTERY OCCLUSION [None]
